FAERS Safety Report 8377486-3 (Version None)
Quarter: 2012Q2

REPORT INFORMATION
  Report Type: 
  Country: None (occurrence: None)
  Receive Date: 20120522
  Receipt Date: 20120206
  Transmission Date: 20120825
  Serious: Yes (Hospitalization)
  Sender: FDA-Public Use
  Company Number: US-ASTRAZENECA-2012SE07935

PATIENT
  Sex: Female

DRUGS (2)
  1. NEXIUM [Concomitant]
  2. PRILOSEC [Suspect]
     Route: 048

REACTIONS (1)
  - ABDOMINAL DISCOMFORT [None]
